FAERS Safety Report 5145946-4 (Version None)
Quarter: 2006Q4

REPORT INFORMATION
  Report Type: 
  Country: None (occurrence: None)
  Receive Date: 20061108
  Receipt Date: 20061006
  Transmission Date: 20070319
  Serious: Yes (Death)
  Sender: FDA-Public Use
  Company Number: DE-ELI_LILLY_AND_COMPANY-DE200610001502

PATIENT
  Age: 79 Year
  Sex: Female

DRUGS (5)
  1. FORTEO [Suspect]
     Indication: OSTEOPOROSIS
     Dosage: 2 U, DAILY (1/D)
     Route: 058
     Dates: start: 20060928, end: 20061005
  2. ANALGESICS [Concomitant]
  3. ISOKET RETARD [Concomitant]
     Indication: CORONARY ARTERY DISEASE
     Dosage: 60 MG, DAILY (1/D)
     Route: 048
     Dates: start: 20060925, end: 20061005
  4. TRIAMTEREN [Concomitant]
     Indication: CORONARY ARTERY DISEASE
     Dosage: UNK, DAILY (1/D)
     Route: 048
     Dates: start: 20060925, end: 20061005
  5. NEXIUM [Concomitant]
     Dosage: 20 MG, DAILY (1/D)
     Route: 048
     Dates: start: 20060925, end: 20061005

REACTIONS (2)
  - CARDIOPULMONARY FAILURE [None]
  - SUDDEN DEATH [None]
